FAERS Safety Report 9177078 (Version 4)
Quarter: 2013Q4

REPORT INFORMATION
  Report Type: Spontaneous
  Country: IR (occurrence: IR)
  Receive Date: 20130321
  Receipt Date: 20131107
  Transmission Date: 20140711
  Serious: Yes (Life-Threatening, Hospitalization, Other)
  Sender: FDA-Public Use
  Company Number: IR-JNJFOC-20130310155

PATIENT
  Age: 20 Year
  Sex: Male

DRUGS (1)
  1. TRAMADOL [Suspect]
     Indication: SUICIDE ATTEMPT
     Route: 048

REACTIONS (6)
  - Toxicity to various agents [Unknown]
  - Loss of consciousness [Recovered/Resolved]
  - Intentional overdose [Recovered/Resolved]
  - Tongue injury [Unknown]
  - Suicide attempt [Recovered/Resolved]
  - Grand mal convulsion [Recovered/Resolved]
